FAERS Safety Report 10024970 (Version 2)
Quarter: 2014Q2

REPORT INFORMATION
  Report Type: Spontaneous
  Country: US (occurrence: DE)
  Receive Date: 20140320
  Receipt Date: 20140410
  Transmission Date: 20141212
  Serious: Yes (Hospitalization)
  Sender: FDA-Public Use
  Company Number: DE-FRI-1000064833

PATIENT
  Age: 71 Year
  Sex: Male
  Weight: 110 kg

DRUGS (5)
  1. ROFLUMILAST [Suspect]
     Indication: CHRONIC OBSTRUCTIVE PULMONARY DISEASE
     Dosage: 250 MCG
     Route: 048
     Dates: start: 20131205, end: 20140330
  2. ROFLUMILAST [Suspect]
     Dosage: 500 MCG
     Route: 048
     Dates: start: 20140331
  3. FORMOLICH [Concomitant]
     Dates: start: 20130423
  4. BRETARIS GENUAIR [Concomitant]
     Dates: start: 20130423
  5. SALBUHEXAL [Concomitant]
     Dates: start: 20130131

REACTIONS (2)
  - Dyspnoea [Recovered/Resolved]
  - Off label use [Recovered/Resolved]
